FAERS Safety Report 11137342 (Version 1)
Quarter: 2015Q2

REPORT INFORMATION
  Report Type: Spontaneous
  Country: US (occurrence: US)
  Receive Date: 20150526
  Receipt Date: 20150526
  Transmission Date: 20150821
  Serious: Yes (Other)
  Sender: FDA-Public Use
  Company Number: US-MYLANLABS-2014S1010203

PATIENT
  Age: 46 Year
  Sex: Female
  Weight: 58.51 kg

DRUGS (16)
  1. BUPROPION HYDROCHLORIDE EXTENDED RELEASE SR [Suspect]
     Active Substance: BUPROPION HYDROCHLORIDE
     Dosage: 100 MG,ONCE
     Route: 048
     Dates: start: 20140501, end: 20140501
  2. BUPROPION HYDROCHLORIDE EXTENDED RELEASE SR [Suspect]
     Active Substance: BUPROPION HYDROCHLORIDE
     Dosage: 100 MG,ONCE
     Route: 048
     Dates: start: 20140501, end: 20140501
  3. CARISOPRODOL. [Concomitant]
     Active Substance: CARISOPRODOL
     Dosage: UNK
  4. BUPROPION HYDROCHLORIDE EXTENDED RELEASE SR [Suspect]
     Active Substance: BUPROPION HYDROCHLORIDE
     Dosage: 100 MG,ONCE
     Route: 048
     Dates: start: 20140501, end: 20140501
  5. MELATONIN [Concomitant]
     Active Substance: MELATONIN
     Dosage: 6 MG,UNK
  6. FLUCONAZOLE. [Concomitant]
     Active Substance: FLUCONAZOLE
     Dosage: 100 UNK,UNK
     Dates: start: 20140424
  7. BUPROPION HYDROCHLORIDE EXTENDED RELEASE SR [Suspect]
     Active Substance: BUPROPION HYDROCHLORIDE
     Dosage: 100 MG,ONCE
     Route: 048
     Dates: start: 20140501, end: 20140501
  8. DICYCLOMINE [Concomitant]
     Active Substance: DICYCLOMINE HYDROCHLORIDE
     Dosage: 20 MG,UNK
  9. NEURONTIN [Concomitant]
     Active Substance: GABAPENTIN
     Dosage: 300 MG,UNK
     Dates: start: 20140424
  10. OMEPRAZOLE. [Concomitant]
     Active Substance: OMEPRAZOLE
     Dosage: 20 MG,UNK
     Dates: start: 20140429
  11. BUPROPION HYDROCHLORIDE EXTENDED RELEASE SR [Suspect]
     Active Substance: BUPROPION HYDROCHLORIDE
     Indication: DEPRESSION
     Dosage: 100 MG,ONCE
     Route: 048
     Dates: start: 20140501, end: 20140501
  12. SEASONIQUE [Concomitant]
     Active Substance: ETHINYL ESTRADIOL\LEVONORGESTREL
     Dosage: UNK
  13. QUETIAPINE [Concomitant]
     Active Substance: QUETIAPINE
     Dosage: 10 UNK,UNK
     Dates: start: 20140424
  14. LEXAPRO [Concomitant]
     Active Substance: ESCITALOPRAM OXALATE
     Dosage: 30 MG,UNK
  15. BUPROPION HYDROCHLORIDE EXTENDED RELEASE SR [Suspect]
     Active Substance: BUPROPION HYDROCHLORIDE
     Dosage: 100 MG,ONCE
     Route: 048
     Dates: start: 20140501, end: 20140501
  16. MACROBID [Concomitant]
     Active Substance: NITROFURANTOIN\NITROFURANTOIN MONOHYDRATE
     Dosage: UNK
     Dates: start: 20140429

REACTIONS (3)
  - Seizure [Not Recovered/Not Resolved]
  - Aspartate aminotransferase increased [Not Recovered/Not Resolved]
  - Alanine aminotransferase increased [Not Recovered/Not Resolved]

NARRATIVE: CASE EVENT DATE: 20140502
